FAERS Safety Report 6924519-4 (Version None)
Quarter: 2010Q3

REPORT INFORMATION
  Report Type: 
  Country: None (occurrence: None)
  Receive Date: 20100811
  Receipt Date: 20100729
  Transmission Date: 20110219
  Serious: Yes (Congenital Anomaly)
  Sender: FDA-Public Use
  Company Number: CIP10001775

PATIENT
  Age: 14 Month
  Sex: Female

DRUGS (2)
  1. NITROFURANTOIN (MONOHYDRATE/MACROCRYSTALS) [Suspect]
     Dosage: TRANSPLACENTAL
     Route: 064
  2. DEBENDOX /00015801/ (DICYCLOVERINE HYDROCHLORIDE, DOXYLAMINE SUCCINATE [Suspect]
     Dosage: TRANSPLACENTAL
     Route: 064

REACTIONS (6)
  - AREFLEXIA [None]
  - BENIGN CONGENITAL HYPOTONIA [None]
  - BRACHIAL PLEXOPATHY [None]
  - DERMATOGLYPHIC ANOMALY [None]
  - MATERNAL DRUGS AFFECTING FOETUS [None]
  - MUSCLE ATROPHY [None]
